FAERS Safety Report 7812895-X (Version None)
Quarter: 2011Q4

REPORT INFORMATION
  Report Type: 
  Country: None (occurrence: None)
  Receive Date: 20111013
  Receipt Date: 20111011
  Transmission Date: 20120403
  Serious: Yes (Death, Life-Threatening, Hospitalization, Other)
  Sender: FDA-Public Use
  Company Number: US-B.I. PHARMACEUTICALS,INC./RIDGEFIELD-2011-BP-22339BP

PATIENT
  Age: 76 Year
  Sex: Male

DRUGS (7)
  1. AMIODARONE HCL [Concomitant]
     Dosage: 200 MG
  2. PRADAXA [Suspect]
     Indication: ATRIAL FIBRILLATION
     Dosage: 300 MG
  3. FINASTERIDE [Concomitant]
     Dosage: 5 MG
  4. MECLIZINE [Concomitant]
     Dosage: 50 MG
  5. SIMVASTATIN [Concomitant]
     Dosage: 20 MG
  6. BENICAR [Concomitant]
     Dosage: 20 MG
  7. METOPROLOL TARTRATE [Concomitant]
     Dosage: 25 MG

REACTIONS (5)
  - HAEMORRHAGE INTRACRANIAL [None]
  - HEAD INJURY [None]
  - FALL [None]
  - SUBDURAL HAEMATOMA [None]
  - HAEMORRHAGIC STROKE [None]
